FAERS Safety Report 23567224 (Version 2)
Quarter: 2024Q1

REPORT INFORMATION
  Report Type: Spontaneous
  Country: DE (occurrence: DE)
  Receive Date: 20240226
  Receipt Date: 20240313
  Transmission Date: 20240410
  Serious: Yes (Disabling, Other)
  Sender: FDA-Public Use
  Company Number: DE-PFIZER INC-202400048467

PATIENT
  Age: 57 Year
  Sex: Female

DRUGS (7)
  1. METHOTREXATE SODIUM [Suspect]
     Active Substance: METHOTREXATE SODIUM
     Indication: Rheumatoid arthritis
     Dosage: 10 MG, WEEKLY
     Route: 058
  2. PREDNISOLONE [Concomitant]
     Active Substance: PREDNISOLONE
     Dosage: 4 MG, 1X/DAY
  3. DAPAGLIFLOZIN [Concomitant]
     Active Substance: DAPAGLIFLOZIN
     Dosage: 10 MG, 1X/DAY
  4. CANDESARTAN [Concomitant]
     Active Substance: CANDESARTAN
     Dosage: 32 MG, 1X/DAY
  5. PREGABALIN [Concomitant]
     Active Substance: PREGABALIN
     Dosage: 75 MG, 1X/DAY
  6. ROSUVASTATIN [Concomitant]
     Active Substance: ROSUVASTATIN
     Dosage: 10 MG, 1X/DAY
  7. EZETIMIBE [Concomitant]
     Active Substance: EZETIMIBE
     Dosage: 10 MG, 1X/DAY

REACTIONS (2)
  - Emphysema [Not Recovered/Not Resolved]
  - Anti-neutrophil cytoplasmic antibody positive vasculitis [Unknown]

NARRATIVE: CASE EVENT DATE: 20240201
